FAERS Safety Report 4667533-4 (Version None)
Quarter: 2005Q2

REPORT INFORMATION
  Report Type: 
  Country: None (occurrence: None)
  Receive Date: 20050428
  Receipt Date: 20040406
  Transmission Date: 20051028
  Serious: Yes (Other)
  Sender: FDA-Public Use
  Company Number: 2004016587

PATIENT
  Age: 48 Year
  Sex: Female

DRUGS (1)
  1. ZITHROMAX [Suspect]
     Indication: LYME DISEASE

REACTIONS (1)
  - DEAFNESS [None]
